FAERS Safety Report 20745794 (Version 1)
Quarter: 2022Q2

REPORT INFORMATION
  Report Type: Spontaneous
  Country: US (occurrence: None)
  Receive Date: 20220423
  Receipt Date: 20220423
  Transmission Date: 20220721
  Serious: Yes (Disabling, Other)
  Sender: FDA-Public Use
  Company Number: None

PATIENT
  Age: 28 Year
  Sex: Male
  Weight: 72 kg

DRUGS (2)
  1. VIVITROL [Suspect]
     Active Substance: NALTREXONE
     Indication: Alcoholism
     Dosage: OTHER FREQUENCY : ONCE A MONTH;?OTHER ROUTE : GLUTE MUSCLE INJECTION;?
     Route: 050
     Dates: start: 20210428, end: 20210623
  2. GABAPENTIN [Concomitant]
     Active Substance: GABAPENTIN

REACTIONS (17)
  - Screaming [None]
  - Pain [None]
  - Rash [None]
  - Monoplegia [None]
  - Erectile dysfunction [None]
  - Nerve injury [None]
  - Weight decreased [None]
  - Muscle injury [None]
  - Tissue injury [None]
  - Necrosis [None]
  - Haematospermia [None]
  - Blood urine present [None]
  - Fatigue [None]
  - Gait inability [None]
  - Pain in extremity [None]
  - Wrong technique in product usage process [None]
  - Sciatic nerve injury [None]

NARRATIVE: CASE EVENT DATE: 20210623
